FAERS Safety Report 6523541-X (Version None)
Quarter: 2009Q4

REPORT INFORMATION
  Report Type: 
  Country: None (occurrence: None)
  Receive Date: 20091231
  Receipt Date: 20091221
  Transmission Date: 20100525
  Serious: Yes (Other)
  Sender: FDA-Public Use
  Company Number: PHHY2009DE43825

PATIENT
  Sex: Female
  Weight: 55 kg

DRUGS (3)
  1. RASILEZ [Suspect]
     Indication: HYPERTENSION
     Dosage: 0.5 TABLET (150 MG)/DAY
     Route: 048
     Dates: start: 20091002
  2. RASILEZ [Suspect]
     Indication: CARDIAC FAILURE
     Dosage: 150 MG DAILY
     Route: 048
     Dates: start: 20091004, end: 20091008
  3. SPIRONOLACTONE [Concomitant]

REACTIONS (7)
  - BLOOD CREATININE INCREASED [None]
  - BLOOD UREA INCREASED [None]
  - C-REACTIVE PROTEIN INCREASED [None]
  - CONDITION AGGRAVATED [None]
  - GAMMA-GLUTAMYLTRANSFERASE INCREASED [None]
  - INFECTION [None]
  - WHITE BLOOD CELL COUNT INCREASED [None]
